FAERS Safety Report 11232188 (Version 1)
Quarter: 2015Q3

REPORT INFORMATION
  Report Type: Spontaneous
  Country: CH (occurrence: PT)
  Receive Date: 20150701
  Receipt Date: 20150701
  Transmission Date: 20151125
  Serious: Yes (Hospitalization)
  Sender: FDA-Public Use
  Company Number: CH-LPDUSPRD-20150501

PATIENT
  Age: 50 Year
  Sex: Female
  Weight: 75 kg

DRUGS (1)
  1. VENOFER [Suspect]
     Active Substance: IRON SUCROSE
     Dosage: 300 MG, 1 IN 1 TOTAL
     Route: 041
     Dates: start: 20150527, end: 20150527

REACTIONS (7)
  - Generalised erythema [Unknown]
  - Pain [Unknown]
  - Product preparation error [Unknown]
  - Urticaria [Unknown]
  - Generalised oedema [Unknown]
  - Headache [Unknown]
  - Malaise [Unknown]

NARRATIVE: CASE EVENT DATE: 20150527
